FAERS Safety Report 15850661 (Version 1)
Quarter: 2019Q1

REPORT INFORMATION
  Report Type: Spontaneous
  Country: US (occurrence: US)
  Receive Date: 20190121
  Receipt Date: 20190121
  Transmission Date: 20190417
  Serious: Yes (Death, Hospitalization)
  Sender: FDA-Public Use
  Company Number: US-MISSION PHARMACAL COMPANY-2061528

PATIENT
  Sex: Female

DRUGS (6)
  1. ACEBUTOLOL HYDROCHLORIDE. [Concomitant]
     Active Substance: ACEBUTOLOL HYDROCHLORIDE
  2. SIMVASTATIN. [Concomitant]
     Active Substance: SIMVASTATIN
  3. LITHOSTAT [Suspect]
     Active Substance: ACETOHYDROXAMIC ACID
     Indication: NEPHROLITHIASIS
     Route: 048
     Dates: end: 20190112
  4. TOVIAZ [Concomitant]
     Active Substance: FESOTERODINE FUMARATE
  5. TEMAZEPAM. [Concomitant]
     Active Substance: TEMAZEPAM
  6. OMEPRAZOLE. [Concomitant]
     Active Substance: OMEPRAZOLE

REACTIONS (4)
  - Sepsis [Fatal]
  - Pneumonia [Fatal]
  - Thrombosis [Fatal]
  - Death [Fatal]

NARRATIVE: CASE EVENT DATE: 20190112
